FAERS Safety Report 6250344-6 (Version None)
Quarter: 2009Q2

REPORT INFORMATION
  Report Type: 
  Country: None (occurrence: None)
  Receive Date: 20090626
  Receipt Date: 20090626
  Transmission Date: 20091009
  Serious: Yes (Other)
  Sender: FDA-Public Use
  Company Number: None

PATIENT
  Age: 61 Year
  Sex: Female
  Weight: 88.905 kg

DRUGS (1)
  1. ZICAM INTENSE SINUS RELIEF [Suspect]
     Indication: SINUSITIS
     Dosage: 1 SPRAY ONCE A DAY
     Dates: start: 20090530, end: 20090531

REACTIONS (2)
  - AGEUSIA [None]
  - ANOSMIA [None]
